FAERS Safety Report 9486637 (Version 3)
Quarter: 2013Q3

REPORT INFORMATION
  Report Type: Report from Study
  Country: US (occurrence: US)
  Receive Date: 20130829
  Receipt Date: 20130918
  Transmission Date: 20140515
  Serious: Yes (Other)
  Sender: FDA-Public Use
  Company Number: US-BAYER-2013-102538

PATIENT
  Sex: 0

DRUGS (11)
  1. SORAFENIB (RAF KINASE INHIBITOR) [Suspect]
     Indication: BREAST CANCER
  2. CISPLATIN [Suspect]
     Indication: BREAST CANCER
  3. PACLITAXEL [Suspect]
     Indication: BREAST CANCER
  4. BUPROPION [Concomitant]
  5. IBANDRONATE SODIUM [Concomitant]
  6. LORAZEPAM [Concomitant]
  7. OMEPRAZOLE [Concomitant]
  8. ONDANSETRON [Concomitant]
  9. PROMETHAZINE [Concomitant]
  10. SCOPOLAMINE [Concomitant]
  11. SERTRALINE [Concomitant]

REACTIONS (3)
  - Headache [None]
  - Mydriasis [None]
  - Vision blurred [None]
